FAERS Safety Report 13919462 (Version 5)
Quarter: 2018Q2

REPORT INFORMATION
  Report Type: Spontaneous
  Country: FR (occurrence: FR)
  Receive Date: 20170830
  Receipt Date: 20180531
  Transmission Date: 20180711
  Serious: Yes (Hospitalization, Other)
  Sender: FDA-Public Use
  Company Number: FR-AUROBINDO-AUR-APL-2017-39486

PATIENT

DRUGS (1)
  1. AMOXICILLIN. [Suspect]
     Active Substance: AMOXICILLIN
     Indication: ERYTHEMA MIGRANS
     Dosage: 3 GRAM DAILY;
     Route: 048

REACTIONS (7)
  - Rash maculo-papular [Unknown]
  - Toxic skin eruption [Recovering/Resolving]
  - Drug eruption [Unknown]
  - Rash [Unknown]
  - Rash generalised [Recovered/Resolved]
  - Koebner phenomenon [Unknown]
  - Generalised erythema [Unknown]
